FAERS Safety Report 18456957 (Version 2)
Quarter: 2022Q3

REPORT INFORMATION
  Report Type: Spontaneous
  Country: CA (occurrence: CA)
  Receive Date: 20201103
  Receipt Date: 20220711
  Transmission Date: 20221027
  Serious: Yes (Death, Other)
  Sender: FDA-Public Use
  Company Number: CA-GLAXOSMITHKLINE-CA2020GSK217322

PATIENT

DRUGS (1)
  1. AVANDIA [Suspect]
     Active Substance: ROSIGLITAZONE MALEATE
     Indication: Diabetes mellitus
     Dosage: 8 MG, QD
     Route: 048
     Dates: start: 20030930, end: 20061031

REACTIONS (6)
  - Death [Fatal]
  - Myocardial infarction [Unknown]
  - Myocardial ischaemia [Unknown]
  - Coronary artery stenosis [Unknown]
  - Coronary artery bypass [Unknown]
  - Hypertension [Unknown]

NARRATIVE: CASE EVENT DATE: 20040226
